FAERS Safety Report 6877403-9 (Version None)
Quarter: 2010Q3

REPORT INFORMATION
  Report Type: 
  Country: None (occurrence: None)
  Receive Date: 20100716
  Receipt Date: 20100707
  Transmission Date: 20110219
  Serious: Yes (Life-Threatening, Hospitalization)
  Sender: FDA-Public Use
  Company Number: WSDF_00648

PATIENT
  Sex: Female

DRUGS (7)
  1. WINRHO SDF LIQUID [Suspect]
     Indication: IDIOPATHIC THROMBOCYTOPENIC PURPURA
     Dosage: (75 ?G/KG TOTAL INTRAVENOUS)
     Route: 042
     Dates: start: 20070605, end: 20070605
  2. LEVOTHYROXINE [Concomitant]
  3. DIGOXIN [Concomitant]
  4. PREDNISONE [Concomitant]
  5. LASIX [Concomitant]
  6. DIPRIVAN [Concomitant]
  7. DOPAMINE HCL [Concomitant]

REACTIONS (10)
  - ACUTE RESPIRATORY FAILURE [None]
  - DEPRESSED LEVEL OF CONSCIOUSNESS [None]
  - DISSEMINATED INTRAVASCULAR COAGULATION [None]
  - HAEMOLYSIS [None]
  - HEPATIC FAILURE [None]
  - LETHARGY [None]
  - OVERDOSE [None]
  - RENAL FAILURE ACUTE [None]
  - RESPIRATORY ARREST [None]
  - SEPSIS [None]
